FAERS Safety Report 24004909 (Version 1)
Quarter: 2024Q2

REPORT INFORMATION
  Report Type: Spontaneous
  Country: US (occurrence: None)
  Receive Date: 20240621
  Receipt Date: 20240621
  Transmission Date: 20240716
  Serious: Yes (Hospitalization)
  Sender: FDA-Public Use
  Company Number: None

PATIENT
  Age: 38 Year
  Sex: Female

DRUGS (3)
  1. KESIMPTA [Suspect]
     Active Substance: OFATUMUMAB
     Indication: Multiple sclerosis
     Dosage: OTHER QUANTITY : INJECT 1 PEN;?OTHER FREQUENCY : EVERY 4 WEEKS;?
     Route: 058
     Dates: start: 20221001
  2. KESIMPTA [Concomitant]
     Active Substance: OFATUMUMAB
  3. TYLENOL [Concomitant]
     Active Substance: ACETAMINOPHEN

REACTIONS (3)
  - Malaise [None]
  - Therapy cessation [None]
  - Altered state of consciousness [None]

NARRATIVE: CASE EVENT DATE: 20240610
